FAERS Safety Report 23318515 (Version 1)
Quarter: 2023Q4

REPORT INFORMATION
  Report Type: Spontaneous
  Country: GB (occurrence: GB)
  Receive Date: 20231220
  Receipt Date: 20231220
  Transmission Date: 20240110
  Serious: Yes (Other)
  Sender: FDA-Public Use
  Company Number: None

PATIENT
  Age: 13 Year
  Weight: 69 kg

DRUGS (7)
  1. ALBUTEROL [Suspect]
     Active Substance: ALBUTEROL
     Route: 065
     Dates: start: 20231129
  2. AMOXICILLIN [Concomitant]
     Active Substance: AMOXICILLIN
     Dosage: TIME INTERVAL: 0.33333333 DAYS
     Dates: start: 20231123
  3. ALBUTEROL [Concomitant]
     Active Substance: ALBUTEROL
     Dosage: PUFFS,  SLOW AND STEADY, WHEN REQUIRED...
     Route: 055
     Dates: start: 20231123
  4. KETOCONAZOLE [Concomitant]
     Active Substance: KETOCONAZOLE
     Dosage: USE AS DIRECTED
     Dates: start: 20231123
  5. OTOMIZE [Concomitant]
     Dosage: PUFF,  INTO THE AFFECTED EAR(S), THREE
     Route: 001
     Dates: start: 20231127
  6. CLARITHROMYCIN [Concomitant]
     Active Substance: CLARITHROMYCIN
     Indication: Infection
     Dates: start: 20231129
  7. PREDNISOLONE [Concomitant]
     Active Substance: PREDNISOLONE
     Dosage: VIRAL INDUCED WHEEZE
     Dates: start: 20231129

REACTIONS (1)
  - Rash macular [Recovered/Resolved]

NARRATIVE: CASE EVENT DATE: 20231129
